FAERS Safety Report 14471432 (Version 1)
Quarter: 2018Q1

REPORT INFORMATION
  Report Type: Spontaneous
  Country: BE (occurrence: BE)
  Receive Date: 20180131
  Receipt Date: 20180131
  Transmission Date: 20180509
  Serious: Yes (Death, Other)
  Sender: FDA-Public Use
  Company Number: PHHY2017BE199924

PATIENT
  Age: 31 Year
  Sex: Male

DRUGS (8)
  1. METHOTREXATE. [Suspect]
     Active Substance: METHOTREXATE
     Dosage: 800 UG, (7 TIMES)
     Route: 065
  2. METHOTREXATE. [Suspect]
     Active Substance: METHOTREXATE
     Dosage: UNK
     Route: 042
  3. CYCLOPHOSPHAMIDE. [Concomitant]
     Active Substance: CYCLOPHOSPHAMIDE
     Indication: OCULAR LYMPHOMA
     Dosage: UNK, AS A PART OF CHOP REGIMEN
  4. FOLINIC ACID [Concomitant]
     Active Substance: LEUCOVORIN
     Indication: OCULAR LYMPHOMA
     Dosage: UNK
     Route: 042
  5. VINCRISTINE [Concomitant]
     Active Substance: VINCRISTINE
     Indication: OCULAR LYMPHOMA
     Dosage: AS A PART OF CHOP REGIMEN
     Route: 042
  6. METHOTREXATE. [Suspect]
     Active Substance: METHOTREXATE
     Indication: OCULAR LYMPHOMA
     Dosage: UNK
     Route: 037
  7. DOXORUBICIN [Concomitant]
     Active Substance: DOXORUBICIN
     Indication: OCULAR LYMPHOMA
     Dosage: UNK, AS A PART OF CHOP REGIMEN
     Route: 042
  8. PREDNISONE. [Concomitant]
     Active Substance: PREDNISONE
     Indication: OCULAR LYMPHOMA
     Dosage: UNK, AS A PART OF CHOP REGIMEN
     Route: 042

REACTIONS (1)
  - Keratitis [Unknown]
